FAERS Safety Report 4450886-X (Version None)
Quarter: 2004Q3

REPORT INFORMATION
  Report Type: 
  Country: None (occurrence: None)
  Receive Date: 20040916
  Receipt Date: 20020102
  Transmission Date: 20050211
  Serious: Yes (Other)
  Sender: FDA-Public Use
  Company Number: US-BRISTOL-MYERS SQUIBB COMPANY-11711546

PATIENT
  Age: 26 Year
  Sex: Female

DRUGS (6)
  1. STADOL [Suspect]
     Route: 045
     Dates: start: 19941013
  2. STADOL [Suspect]
     Dosage: ROUTE OF ADMINISTRATION: INJECTION
  3. MEPERGAN FORTIS [Concomitant]
  4. FIORINAL W/CODEINE [Concomitant]
  5. HYDROCODONE + ACETAMINOPHEN [Concomitant]
  6. ALPRAZOLAM [Concomitant]

REACTIONS (1)
  - DEPENDENCE [None]
